FAERS Safety Report 6441792-X (Version None)
Quarter: 2009Q4

REPORT INFORMATION
  Report Type: 
  Country: None (occurrence: None)
  Receive Date: 20091116
  Receipt Date: 20091106
  Transmission Date: 20100525
  Serious: Yes (Death)
  Sender: FDA-Public Use
  Company Number: US-AMGEN-US373289

PATIENT
  Sex: Female

DRUGS (3)
  1. NPLATE [Suspect]
     Indication: IDIOPATHIC THROMBOCYTOPENIC PURPURA
     Dates: start: 20090825, end: 20090930
  2. CORTICOSTEROID NOS [Concomitant]
     Dates: start: 20060526
  3. HYDREA [Concomitant]
     Dates: start: 20090205

REACTIONS (3)
  - ACUTE MYELOID LEUKAEMIA [None]
  - CHRONIC MYELOID LEUKAEMIA [None]
  - MYELOPROLIFERATIVE DISORDER [None]
